FAERS Safety Report 9908066 (Version 1)
Quarter: 2014Q1

REPORT INFORMATION
  Report Type: Spontaneous
  Country: PL (occurrence: PL)
  Receive Date: 20140219
  Receipt Date: 20140219
  Transmission Date: 20141002
  Serious: Yes (Hospitalization)
  Sender: FDA-Public Use
  Company Number: PL-CELGENEUS-129-21660-14020310

PATIENT
  Age: 59 Year
  Sex: Female
  Weight: 64 kg

DRUGS (2)
  1. ABRAXANE [Suspect]
     Indication: OVARIAN CANCER
     Dosage: 293 MILLIGRAM
     Route: 041
     Dates: start: 20131230, end: 20131230
  2. CARBOPLATIN [Concomitant]
     Indication: OVARIAN CANCER
     Dosage: 544 MILLIGRAM
     Route: 041
     Dates: start: 20131230, end: 20131230

REACTIONS (3)
  - Dyspnoea [Recovered/Resolved]
  - Flushing [Recovered/Resolved]
  - Back pain [Recovered/Resolved]
